FAERS Safety Report 6523490-7 (Version None)
Quarter: 2009Q4

REPORT INFORMATION
  Report Type: 
  Country: None (occurrence: None)
  Receive Date: 20091231
  Receipt Date: 20091221
  Transmission Date: 20100525
  Serious: Yes (Hospitalization)
  Sender: FDA-Public Use
  Company Number: PHEH2009US16493

PATIENT
  Sex: Female
  Weight: 62.7 kg

DRUGS (1)
  1. RECLAST [Suspect]
     Indication: OSTEOPOROSIS POSTMENOPAUSAL
     Dosage: 5 MG, UNK
     Route: 042
     Dates: start: 20091119, end: 20091119

REACTIONS (5)
  - CARDIAC FAILURE CONGESTIVE [None]
  - CHILLS [None]
  - MUSCLE SPASMS [None]
  - PNEUMONIA [None]
  - TREMOR [None]
